FAERS Safety Report 20729944 (Version 3)
Quarter: 2022Q3

REPORT INFORMATION
  Report Type: Report from Study
  Country: ES (occurrence: ES)
  Receive Date: 20220420
  Receipt Date: 20220812
  Transmission Date: 20221026
  Serious: Yes (Other)
  Sender: FDA-Public Use
  Company Number: ES-GLAXOSMITHKLINE-ES2022EME066572

PATIENT

DRUGS (1)
  1. BELANTAMAB MAFODOTIN [Suspect]
     Active Substance: BELANTAMAB MAFODOTIN
     Indication: Plasma cell myeloma
     Dosage: 100 MG
     Dates: start: 20220413

REACTIONS (6)
  - Arrhythmia [Recovered/Resolved]
  - Blindness [Not Recovered/Not Resolved]
  - Punctate keratitis [Not Recovered/Not Resolved]
  - Heart rate increased [Recovered/Resolved]
  - Dry eye [Not Recovered/Not Resolved]
  - Hypermetropia [Recovering/Resolving]

NARRATIVE: CASE EVENT DATE: 20220413
